FAERS Safety Report 13448523 (Version 1)
Quarter: 2017Q2

REPORT INFORMATION
  Report Type: Spontaneous
  Country: CA (occurrence: CA)
  Receive Date: 20170417
  Receipt Date: 20170417
  Transmission Date: 20170830
  Serious: Yes (Other)
  Sender: FDA-Public Use
  Company Number: CA-JNJFOC-20170411375

PATIENT
  Age: 22 Year
  Sex: Female

DRUGS (4)
  1. TOPAMAX [Suspect]
     Active Substance: TOPIRAMATE
     Indication: DRUG THERAPY
     Dosage: AT NIGHT
     Route: 048
  2. TOPAMAX [Suspect]
     Active Substance: TOPIRAMATE
     Indication: DRUG THERAPY
     Route: 048
     Dates: start: 201511
  3. EFFEXOR [Concomitant]
     Active Substance: VENLAFAXINE HYDROCHLORIDE
     Indication: PRODUCT USED FOR UNKNOWN INDICATION
     Route: 048
     Dates: start: 2014
  4. TOPAMAX [Suspect]
     Active Substance: TOPIRAMATE
     Indication: DRUG THERAPY
     Dosage: 50MG IN AM AND 75MG HOUR OF SLEEP IN JAN ON AN UNSPECIFIED YEAR
     Route: 048

REACTIONS (7)
  - Blood pressure increased [Recovered/Resolved]
  - Blood creatine phosphokinase increased [Unknown]
  - Heart rate increased [Recovered/Resolved]
  - Product use in unapproved indication [Unknown]
  - Heart rate irregular [Recovered/Resolved]
  - Paraesthesia [Recovered/Resolved]
  - Off label use [Unknown]

NARRATIVE: CASE EVENT DATE: 201511
